FAERS Safety Report 8564644-8 (Version None)
Quarter: 2012Q3

REPORT INFORMATION
  Report Type: 
  Country: None (occurrence: None)
  Receive Date: 20120803
  Receipt Date: 20120730
  Transmission Date: 20120928
  Serious: Yes (Hospitalization)
  Sender: FDA-Public Use
  Company Number: US-B.I. PHARMACEUTICALS,INC./RIDGEFIELD-2012-BP-17165BP

PATIENT
  Sex: Female

DRUGS (6)
  1. BENICAR HCT [Concomitant]
  2. PROCARDIA [Concomitant]
     Route: 048
  3. HYDRALAZINE HCL [Concomitant]
     Route: 048
  4. LABETALOL HCL [Concomitant]
     Route: 048
  5. AGGRENOX [Suspect]
     Indication: CEREBROVASCULAR ACCIDENT PROPHYLAXIS
     Route: 048
     Dates: start: 20090101, end: 20120623
  6. KLOR-CON [Concomitant]
     Indication: SUPPLEMENTATION THERAPY

REACTIONS (4)
  - UPPER GASTROINTESTINAL HAEMORRHAGE [None]
  - HAEMATEMESIS [None]
  - RECTAL HAEMORRHAGE [None]
  - HAEMOGLOBIN DECREASED [None]
